FAERS Safety Report 13360015 (Version 1)
Quarter: 2017Q1

REPORT INFORMATION
  Report Type: Spontaneous
  Country: CD (occurrence: CD)
  Receive Date: 20170322
  Receipt Date: 20170322
  Transmission Date: 20170429
  Serious: Yes (Death)
  Sender: FDA-Public Use
  Company Number: CD-JNJFOC-20170317518

PATIENT
  Age: 20 Year
  Sex: Male

DRUGS (19)
  1. BEDAQUILINE [Suspect]
     Active Substance: BEDAQUILINE
     Indication: TUBERCULOSIS
     Route: 048
     Dates: start: 20160813
  2. HAEMACCEL [Concomitant]
  3. SEKROL [Concomitant]
  4. PARA-AMINOSALICYLIC ACID [Concomitant]
     Active Substance: AMINOSALICYLIC ACID
     Indication: TUBERCULOSIS
  5. LAROXYL [Concomitant]
     Active Substance: AMITRIPTYLINE
  6. TRAMADOL. [Concomitant]
     Active Substance: TRAMADOL
  7. MUCOMIST [Concomitant]
     Active Substance: ACETYLCYSTEINE
  8. TOTHEMA [Concomitant]
     Active Substance: COPPER GLUCONATE\FERROUS GLUCONATE\MANGANESE GLUCONATE
  9. PERFALGAN [Concomitant]
     Active Substance: ACETAMINOPHEN
  10. PYRAZINAMIDE. [Concomitant]
     Active Substance: PYRAZINAMIDE
     Indication: TUBERCULOSIS
  11. INH [Concomitant]
     Active Substance: ISONIAZID
     Indication: TUBERCULOSIS
  12. LINEZOLID. [Concomitant]
     Active Substance: LINEZOLID
     Indication: TUBERCULOSIS
  13. ACIDE FOLIQUE [Concomitant]
     Active Substance: FOLIC ACID
  14. HYDROCORTISONE. [Concomitant]
     Active Substance: HYDROCORTISONE
  15. IMODIUM [Concomitant]
     Active Substance: LOPERAMIDE HYDROCHLORIDE
  16. CLOFAZIMINE [Concomitant]
     Active Substance: CLOFAZIMINE
     Indication: TUBERCULOSIS
  17. AMIKACIN [Concomitant]
     Active Substance: AMIKACIN
     Indication: TUBERCULOSIS
  18. TERPIN HYDRATE AND CODEINE [Concomitant]
     Active Substance: CODEINE\TERPIN HYDRATE
  19. CEFTRIAXONE. [Concomitant]
     Active Substance: CEFTRIAXONE

REACTIONS (8)
  - Arthralgia [Unknown]
  - Vomiting [Unknown]
  - Muscle spasms [Unknown]
  - Neuropathy peripheral [Unknown]
  - Diarrhoea [Unknown]
  - Syncope [Unknown]
  - Pulmonary embolism [Fatal]
  - Rash pruritic [Unknown]

NARRATIVE: CASE EVENT DATE: 201611
